FAERS Safety Report 20168385 (Version 1)
Quarter: 2021Q4

REPORT INFORMATION
  Report Type: Spontaneous
  Country: US (occurrence: US)
  Receive Date: 20211210
  Receipt Date: 20211210
  Transmission Date: 20220304
  Serious: No
  Sender: FDA-Public Use
  Company Number: US-JNJFOC-20211212103

PATIENT
  Sex: Female

DRUGS (1)
  1. REMICADE [Suspect]
     Active Substance: INFLIXIMAB
     Indication: Product used for unknown indication
     Route: 042
     Dates: start: 20211202

REACTIONS (3)
  - Eustachian tube obstruction [Unknown]
  - Yawning [Unknown]
  - Ear congestion [Unknown]

NARRATIVE: CASE EVENT DATE: 20211202
